FAERS Safety Report 21558939 (Version 2)
Quarter: 2022Q4

REPORT INFORMATION
  Report Type: Spontaneous
  Country: US (occurrence: US)
  Receive Date: 20221107
  Receipt Date: 20221108
  Transmission Date: 20230113
  Serious: No
  Sender: FDA-Public Use
  Company Number: US-PFIZER INC-202201277241

PATIENT
  Age: 76 Year
  Sex: Female
  Weight: 47.63 kg

DRUGS (1)
  1. NICOTROL [Suspect]
     Active Substance: NICOTINE
     Indication: Smoking cessation therapy
     Dosage: UNK, DAILY (USES IT EVERY DAY, BUT NOT A LOT)

REACTIONS (3)
  - Withdrawal syndrome [Not Recovered/Not Resolved]
  - Off label use [Unknown]
  - Intentional product use issue [Unknown]
